FAERS Safety Report 9604256 (Version 1)
Quarter: 2013Q4

REPORT INFORMATION
  Report Type: Report from Study
  Country: CA (occurrence: CA)
  Receive Date: 20131008
  Receipt Date: 20131008
  Transmission Date: 20140711
  Serious: Yes (Other)
  Sender: FDA-Public Use
  Company Number: CA-JNJFOC-20131001917

PATIENT
  Age: 53 Year
  Sex: Female
  Weight: 113.1 kg

DRUGS (11)
  1. REMICADE [Suspect]
     Indication: CROHN^S DISEASE
     Dosage: 45TH INFUSION
     Route: 042
     Dates: start: 20130819
  2. REMICADE [Suspect]
     Indication: CROHN^S DISEASE
     Route: 042
     Dates: start: 20080311
  3. TECTA [Concomitant]
     Route: 065
  4. CHOLESTYRAMINE [Concomitant]
     Route: 065
  5. TYLENOL 3 [Concomitant]
     Route: 065
  6. HYDROMORPHONE [Concomitant]
     Route: 065
  7. NABILONE [Concomitant]
     Route: 065
  8. NORTRIPTYLINE [Concomitant]
     Route: 065
  9. COVERSYL [Concomitant]
     Route: 065
  10. HYDROCHLOROTHIAZIDE [Concomitant]
     Route: 065
  11. GABAPENTIN [Concomitant]
     Route: 065

REACTIONS (1)
  - Arthritis [Not Recovered/Not Resolved]
